FAERS Safety Report 14461524 (Version 2)
Quarter: 2018Q3

REPORT INFORMATION
  Report Type: Report from Study
  Country: FR (occurrence: FR)
  Receive Date: 20180130
  Receipt Date: 20180810
  Transmission Date: 20181010
  Serious: Yes (Other)
  Sender: FDA-Public Use
  Company Number: FR-TEVA-2018-FR-850400

PATIENT
  Sex: Female

DRUGS (22)
  1. FASTURTEC [Concomitant]
     Active Substance: RASBURICASE
     Indication: TUMOUR LYSIS SYNDROME
  2. CYCLOPHOSPHAMIDE. [Suspect]
     Active Substance: CYCLOPHOSPHAMIDE
     Route: 042
     Dates: start: 20171103, end: 20171103
  3. DOXORUBICIN [Suspect]
     Active Substance: DOXORUBICIN
     Route: 042
     Dates: start: 20171006, end: 20171020
  4. SALBUTAMOL [Concomitant]
     Active Substance: ALBUTEROL
     Indication: LUNG DISORDER
  5. SPASFON (PHLOROGLUCINOL\TRIMETHYLPHLOROGLUCINOL) [Concomitant]
     Active Substance: PHLOROGLUCINOL\1,3,5-TRIMETHOXYBENZENE
     Indication: ABDOMINAL PAIN
  6. CLAIRYG [Concomitant]
     Active Substance: HUMAN IMMUNOGLOBULIN G
     Indication: HYPOGAMMAGLOBULINAEMIA
  7. VINCRISTINE [Suspect]
     Active Substance: VINCRISTINE
     Indication: ACUTE LYMPHOCYTIC LEUKAEMIA
     Dates: start: 20170606
  8. HYDROXYZINE [Concomitant]
     Active Substance: HYDROXYZINE HYDROCHLORIDE
     Indication: PREMEDICATION
  9. BACTRIM [Concomitant]
     Active Substance: SULFAMETHOXAZOLE\TRIMETHOPRIM
     Indication: PROPHYLAXIS
  10. CYTARABINE. [Suspect]
     Active Substance: CYTARABINE
     Route: 042
     Dates: start: 20171106, end: 20171116
  11. METHOTREXATE. [Suspect]
     Active Substance: METHOTREXATE
     Route: 065
     Dates: start: 20171011, end: 20171106
  12. ZOPHREN [Concomitant]
     Active Substance: ONDANSETRON
     Indication: PROPHYLAXIS
  13. NUBAIN [Concomitant]
     Active Substance: NALBUPHINE HYDROCHLORIDE
     Indication: PREMEDICATION
  14. TAZOCILLINE [Concomitant]
     Active Substance: PIPERACILLIN SODIUM\TAZOBACTAM SODIUM
     Indication: LUNG DISORDER
  15. AMBISOME [Concomitant]
     Active Substance: AMPHOTERICIN B
     Indication: LUNG DISORDER
  16. PEGASPARGASE [Suspect]
     Active Substance: PEGASPARGASE
     Dates: start: 20171009, end: 20171009
  17. THIOGUANINE [Suspect]
     Active Substance: THIOGUANINE
     Route: 048
     Dates: start: 20171108, end: 20171124
  18. DEXAMETHASONE. [Suspect]
     Active Substance: DEXAMETHASONE
     Route: 048
     Dates: start: 20171006, end: 20171012
  19. NALBUPHINE [Concomitant]
     Active Substance: NALBUPHINE
     Indication: PREMEDICATION
  20. VITAMIN K [Concomitant]
     Active Substance: PHYTONADIONE
     Indication: PROPHYLAXIS
  21. LARGACTIL [Concomitant]
     Active Substance: CHLORPROMAZINE
     Indication: PREMEDICATION
  22. PEGASPARGASE [Suspect]
     Active Substance: PEGASPARGASE
     Indication: ACUTE LYMPHOCYTIC LEUKAEMIA
     Dates: start: 20170619, end: 20170619

REACTIONS (1)
  - Drug hypersensitivity [Recovered/Resolved]

NARRATIVE: CASE EVENT DATE: 20171009
